FAERS Safety Report 9328477 (Version 1)
Quarter: 2013Q2

REPORT INFORMATION
  Report Type: Spontaneous
  Country: US (occurrence: US)
  Receive Date: 20130604
  Receipt Date: 20130604
  Transmission Date: 20140414
  Serious: No
  Sender: FDA-Public Use
  Company Number: US-SANOFI-AVENTIS-2012SA050222

PATIENT
  Age: 72 Year
  Sex: Male
  Weight: 97 kg

DRUGS (15)
  1. LANTUS SOLOSTAR [Suspect]
     Indication: DIABETES MELLITUS
     Dosage: HE STOPPED TAKING INSULIN FOR A FEW DAYS AND WAS FINE. DOSE:40 UNIT(S)
     Route: 058
     Dates: start: 200506, end: 2012
  2. LANTUS SOLOSTAR [Suspect]
     Indication: DIABETES MELLITUS
     Dosage: DOSE:40 UNIT(S)
     Route: 058
     Dates: start: 2012
  3. SOLOSTAR [Suspect]
     Indication: DIABETES MELLITUS
     Dates: start: 200506, end: 2012
  4. SOLOSTAR [Suspect]
     Indication: DIABETES MELLITUS
     Dates: start: 2012
  5. NOVOLOG [Suspect]
     Dosage: DOSE IS REPORTED AS 1 UNIT FOR EVERY 5-6 CARBOHYDRATES PRIOR TO EACH MEAL
     Route: 065
  6. MINOXIDIL [Suspect]
     Indication: BLOOD PRESSURE
     Route: 065
     Dates: end: 20120716
  7. TRICOR [Concomitant]
  8. HYDROCHLOROTHIAZIDE/LOSARTAN [Concomitant]
     Dosage: DOSE IS REPORTED AS 120/25 MG
  9. BENAZEPRIL [Concomitant]
  10. SIMVASTATIN [Concomitant]
     Dosage: DOSE ID REPORTED AS HALF OF 40 MG TABLET
  11. CARVEDILOL [Concomitant]
  12. AMLODIPINE BESILATE [Concomitant]
  13. FISH OIL [Concomitant]
  14. ASPIRIN [Concomitant]
  15. CENTRUM SILVER [Concomitant]

REACTIONS (8)
  - Dizziness [Recovered/Resolved]
  - Asthenia [Unknown]
  - Feeling abnormal [Unknown]
  - Blood glucose increased [Unknown]
  - Drug ineffective [Unknown]
  - Disorientation [Recovered/Resolved]
  - Hypotension [Recovered/Resolved]
  - Weight decreased [Unknown]
